FAERS Safety Report 5215775-1 (Version None)
Quarter: 2007Q1

REPORT INFORMATION
  Report Type: 
  Country: None (occurrence: None)
  Receive Date: 20070123
  Receipt Date: 20070118
  Transmission Date: 20070707
  Serious: Yes (Hospitalization)
  Sender: FDA-Public Use
  Company Number: 2007SE00340

PATIENT
  Age: 10169 Day
  Sex: Male
  Weight: 67 kg

DRUGS (10)
  1. BLOPRESS [Suspect]
     Indication: MALIGNANT HYPERTENSION
     Route: 048
     Dates: start: 20061202, end: 20061203
  2. BLOPRESS [Suspect]
     Route: 048
     Dates: start: 20061204, end: 20061217
  3. BLOPRESS [Suspect]
     Route: 048
     Dates: start: 20061218
  4. AMLODIPINE BESYLATE [Suspect]
     Indication: MALIGNANT HYPERTENSION
     Route: 048
     Dates: start: 20061207, end: 20061218
  5. TAKEPRON [Concomitant]
     Route: 048
     Dates: start: 20061125
  6. ARTIST [Concomitant]
     Indication: MALIGNANT HYPERTENSION
     Route: 048
     Dates: start: 20061206
  7. ADALAT [Concomitant]
     Indication: MALIGNANT HYPERTENSION
     Route: 048
     Dates: start: 20061125, end: 20061205
  8. CARDENALIN [Concomitant]
     Indication: MALIGNANT HYPERTENSION
     Route: 048
     Dates: start: 20061127
  9. ADALAT [Concomitant]
     Indication: MALIGNANT HYPERTENSION
     Route: 048
     Dates: start: 20061205
  10. PERDIPINE [Concomitant]
     Indication: MALIGNANT HYPERTENSION
     Route: 048
     Dates: start: 20061125, end: 20061207

REACTIONS (1)
  - LIVER DISORDER [None]
